FAERS Safety Report 7362497-7 (Version None)
Quarter: 2011Q1

REPORT INFORMATION
  Report Type: 
  Country: None (occurrence: None)
  Receive Date: 20110318
  Receipt Date: 20110310
  Transmission Date: 20110831
  Serious: Yes (Other)
  Sender: FDA-Public Use
  Company Number: BR-GENENTECH-306326

PATIENT
  Sex: Female
  Weight: 89 kg

DRUGS (12)
  1. TYLEX [Concomitant]
     Indication: PRODUCT USED FOR UNKNOWN INDICATION
     Dosage: UNK
  2. CORTISONE [Concomitant]
     Indication: PRODUCT USED FOR UNKNOWN INDICATION
     Dosage: UNK
  3. RANITIDINE [Concomitant]
     Indication: PRODUCT USED FOR UNKNOWN INDICATION
     Dosage: 150 MG, UNK
  4. ACETAMINOPHEN [Concomitant]
     Indication: PAIN
     Dosage: 750 MG, UNK
  5. ACETAMINOPHEN [Concomitant]
     Indication: PRODUCT USED FOR UNKNOWN INDICATION
     Dosage: 350 MG, UNK
  6. AZATHIOPRINE [Concomitant]
     Indication: IMMUNODEFICIENCY
     Dosage: 50 MG, UNK
     Dates: start: 20090101, end: 20110304
  7. CODEINE [Concomitant]
     Indication: PRODUCT USED FOR UNKNOWN INDICATION
     Dosage: 25 MG, UNK
  8. METFORMIN HYDROCHLORIDE [Concomitant]
     Indication: PRODUCT USED FOR UNKNOWN INDICATION
     Dosage: 500 MG, UNK
  9. RITUXIMAB [Suspect]
     Indication: SYSTEMIC LUPUS ERYTHEMATOSUS
     Dosage: 500 MG, Q14D
     Route: 042
     Dates: start: 20101001
  10. RITUXIMAB [Suspect]
     Dosage: UNK
     Route: 042
  11. LOSARTAN POTASSIUM [Concomitant]
     Indication: PRODUCT USED FOR UNKNOWN INDICATION
     Dosage: UNK
  12. AMITRIPTILINA [Concomitant]
     Indication: PRODUCT USED FOR UNKNOWN INDICATION
     Dosage: 7.5 MG, UNK

REACTIONS (16)
  - WOUND [None]
  - DYSPEPSIA [None]
  - PROTEINURIA [None]
  - PRURITUS [None]
  - PYREXIA [None]
  - MALAISE [None]
  - SOMNOLENCE [None]
  - DENGUE FEVER [None]
  - HEADACHE [None]
  - VISION BLURRED [None]
  - LOWER EXTREMITY MASS [None]
  - INAPPROPRIATE SCHEDULE OF DRUG ADMINISTRATION [None]
  - MYALGIA [None]
  - FEELING HOT [None]
  - OEDEMA PERIPHERAL [None]
  - DIZZINESS [None]
